FAERS Safety Report 4539609-3 (Version None)
Quarter: 2004Q4

REPORT INFORMATION
  Report Type: 
  Country: None (occurrence: None)
  Receive Date: 20041222
  Receipt Date: 20041206
  Transmission Date: 20050328
  Serious: Yes (Hospitalization)
  Sender: FDA-Public Use
  Company Number: 203488

PATIENT
  Age: 48 Year
  Sex: Female

DRUGS (6)
  1. AVONEX [Suspect]
     Indication: MULTIPLE SCLEROSIS
     Dosage: 30 UG; QW; IM
     Route: 030
     Dates: start: 19990601, end: 20030901
  2. AVONEX [Suspect]
     Indication: MULTIPLE SCLEROSIS
     Dosage: 30 UG; QW; IM
     Route: 030
     Dates: start: 20030901
  3. ADVIL [Concomitant]
  4. CELEBREX [Concomitant]
  5. TYLENOL [Concomitant]
  6. VICODIN [Concomitant]

REACTIONS (3)
  - CROHN'S DISEASE [None]
  - HYPOTENSION [None]
  - LOSS OF CONSCIOUSNESS [None]
